FAERS Safety Report 5939786-3 (Version None)
Quarter: 2008Q4

REPORT INFORMATION
  Report Type: 
  Country: None (occurrence: None)
  Receive Date: 20081030
  Receipt Date: 20081030
  Transmission Date: 20090506
  Serious: No
  Sender: FDA-Public Use
  Company Number: None

PATIENT
  Sex: Male
  Weight: 92.0802 kg

DRUGS (1)
  1. METFORMIN HCL [Suspect]
     Indication: TYPE 2 DIABETES MELLITUS
     Dosage: 500MG TWICE DAILY PO
     Route: 048
     Dates: start: 20080514, end: 20080814

REACTIONS (3)
  - DRUG INTOLERANCE [None]
  - NAUSEA [None]
  - PAIN [None]
